FAERS Safety Report 6747799-7 (Version None)
Quarter: 2010Q2

REPORT INFORMATION
  Report Type: 
  Country: None (occurrence: None)
  Receive Date: 20100528
  Receipt Date: 20100517
  Transmission Date: 20101027
  Serious: Yes (Hospitalization)
  Sender: FDA-Public Use
  Company Number: US-PFIZER INC-2010062246

PATIENT
  Age: 62 Year
  Sex: Male

DRUGS (5)
  1. MINOXIDIL [Suspect]
     Indication: HYPERTENSION
     Dosage: 10 MG, 2X/DAY
  2. MINOXIDIL [Suspect]
     Dosage: 20 MG, 2X/DAY
  3. ATENOLOL [Concomitant]
  4. LISINOPRIL [Concomitant]
  5. HYDROCHLOROTHIAZIDE [Concomitant]

REACTIONS (1)
  - PLEURAL EFFUSION [None]
